FAERS Safety Report 4433462-4 (Version None)
Quarter: 2004Q3

REPORT INFORMATION
  Report Type: 
  Country: None (occurrence: None)
  Receive Date: 20040825
  Receipt Date: 20040825
  Transmission Date: 20050211
  Serious: Yes (Other)
  Sender: FDA-Public Use
  Company Number: None

PATIENT
  Sex: Female
  Weight: 72.5755 kg

DRUGS (1)
  1. DURAGESIC [Suspect]
     Indication: ARTHRALGIA
     Dosage: 1 PATCH   72 HRS  TOPICAL
     Route: 061
     Dates: start: 20040815, end: 20040822

REACTIONS (3)
  - COLD SWEAT [None]
  - DISORIENTATION [None]
  - TINNITUS [None]
